FAERS Safety Report 4881420-8 (Version None)
Quarter: 2005Q4

REPORT INFORMATION
  Report Type: 
  Country: None (occurrence: None)
  Receive Date: 20051201
  Receipt Date: 20050724
  Transmission Date: 20060501
  Serious: No
  Sender: FDA-Public Use
  Company Number: 2005PV000640

PATIENT
  Age: 77 Year
  Sex: Male

DRUGS (11)
  1. BYETTA [Suspect]
     Indication: DIABETES MELLITUS NON-INSULIN-DEPENDENT
     Dosage: 5 MCG;BID;SC
     Route: 058
     Dates: start: 20050722
  2. CRESTOR [Concomitant]
  3. PLAVIX [Concomitant]
  4. ISOSORBIDE MONONITRATE [Concomitant]
  5. TOPROL [Concomitant]
  6. PREVACID [Concomitant]
  7. ASPIRIN [Concomitant]
  8. FOLTX [Concomitant]
  9. CYMBALTA [Concomitant]
  10. AVODART [Concomitant]
  11. HUMALOG [Concomitant]

REACTIONS (6)
  - ASTHENIA [None]
  - BLOOD GLUCOSE ABNORMAL [None]
  - BLOOD GLUCOSE INCREASED [None]
  - HEADACHE [None]
  - MALAISE [None]
  - MUSCULAR WEAKNESS [None]
